FAERS Safety Report 9997960 (Version 3)
Quarter: 2014Q1

REPORT INFORMATION
  Report Type: Report from Study
  Country: US (occurrence: US)
  Receive Date: 20140311
  Receipt Date: 20140325
  Transmission Date: 20141002
  Serious: Yes (Hospitalization)
  Sender: FDA-Public Use
  Company Number: US-PFIZER INC-2014065408

PATIENT
  Age: 66 Year
  Sex: Male
  Weight: 106.12 kg

DRUGS (25)
  1. BLINDED PLACEBO [Suspect]
     Indication: SMOKING CESSATION THERAPY
     Dosage: BLNDED THERAPY, 2X/DAY
     Route: 048
     Dates: start: 20131219, end: 20140227
  2. BLINDED PLACEBO [Suspect]
     Indication: SMOKING CESSATION THERAPY
     Dosage: BLNDED THERAPY, 2X/DAY
     Route: 048
     Dates: start: 20131219, end: 20140227
  3. BLINDED VARENICLINE TARTRATE [Suspect]
     Indication: SMOKING CESSATION THERAPY
     Dosage: BLNDED THERAPY, 2X/DAY
     Route: 048
     Dates: start: 20131219, end: 20140227
  4. BLINDED VARENICLINE TARTRATE [Suspect]
     Indication: SMOKING CESSATION THERAPY
     Dosage: BLNDED THERAPY, 2X/DAY
     Route: 048
     Dates: start: 20131219, end: 20140227
  5. BLINDED PLACEBO [Suspect]
     Dosage: BLNDED THERAPY, 2X/DAY
     Route: 048
     Dates: start: 20140302, end: 20140312
  6. BLINDED PLACEBO [Suspect]
     Dosage: BLNDED THERAPY, 2X/DAY
     Route: 048
     Dates: start: 20140302, end: 20140312
  7. BLINDED VARENICLINE TARTRATE [Suspect]
     Dosage: BLNDED THERAPY, 2X/DAY
     Route: 048
     Dates: start: 20140302, end: 20140312
  8. BLINDED VARENICLINE TARTRATE [Suspect]
     Dosage: BLNDED THERAPY, 2X/DAY
     Route: 048
     Dates: start: 20140302, end: 20140312
  9. VARENICLINE TARTRATE [Suspect]
     Indication: SMOKING CESSATION THERAPY
     Dosage: 0.5 MG, 1X/DAY
     Route: 048
     Dates: start: 20130926, end: 20130928
  10. VARENICLINE TARTRATE [Suspect]
     Dosage: 0.5 MG, 2X/DAY
     Route: 048
     Dates: start: 20130929, end: 20131002
  11. VARENICLINE TARTRATE [Suspect]
     Dosage: 1 MG, 2X/DAY
     Route: 048
     Dates: start: 20131003, end: 20131218
  12. CARBOPLATIN [Suspect]
     Dosage: UNK, EVERY 3 WEEKS
     Route: 042
     Dates: start: 20130906, end: 20131108
  13. CALCIUM CARBONATE - VITAMIN D [Suspect]
     Dosage: 1200 MG, 1X/DAY
     Route: 048
     Dates: start: 20130708
  14. LORAZEPAM [Suspect]
     Dosage: 0.5 MG, AS NEEDED
     Route: 048
     Dates: start: 20130906
  15. PEMETREXED [Suspect]
     Dosage: 500 MG/M2, EVERY 3 WEEKS
     Route: 042
     Dates: start: 20130906
  16. FOLIC ACID [Concomitant]
     Dosage: 1 MG, 1X/DAY
     Route: 048
     Dates: start: 20130906
  17. DEXAMETHASONE SODIUM PHOSPHATE [Concomitant]
     Dosage: 8 MG, 2X/DAY
     Route: 048
     Dates: start: 20130906
  18. ONDANSETRON HYDROCHLORIDE [Concomitant]
     Dosage: 8 MG, AS NEEDED
     Route: 048
     Dates: start: 20130906
  19. LOSARTAN POTASSIUM [Concomitant]
     Dosage: 100 MG, 1X/DAY
     Route: 048
     Dates: start: 20130708
  20. VITAMIN B12 [Concomitant]
     Dosage: 1000 UG, EVERY 9 WEEKS
     Route: 030
     Dates: start: 20130906
  21. SENNOSIDES-DOCUSATE [Concomitant]
     Dosage: 2 DF (DOCUSATE SODIUM 50 MG/ SENNOSIDES A+B 8.6 MG), BID AS NEEDED
     Route: 048
     Dates: start: 20130906
  22. HYDROCHLOROTHIAZIDE [Concomitant]
     Dosage: 12.5 MG, 1X/DAY
     Route: 048
     Dates: start: 20130709, end: 20131206
  23. ROSUVASTATIN CALCIUM [Concomitant]
     Dosage: 20 MG, 1X/DAY
     Route: 048
     Dates: start: 20120702
  24. ASPIRIN [Concomitant]
     Dosage: 81 MG, 1X/DAY
     Route: 048
     Dates: start: 20050607
  25. PLAVIX [Concomitant]
     Dosage: 75 MG, 1X/DAY
     Route: 048
     Dates: start: 20050607

REACTIONS (1)
  - Hypercalcaemia [Recovering/Resolving]
